FAERS Safety Report 12821526 (Version 11)
Quarter: 2017Q2

REPORT INFORMATION
  Report Type: Report from Study
  Country: FR (occurrence: FR)
  Receive Date: 20161007
  Receipt Date: 20170622
  Transmission Date: 20170830
  Serious: Yes (Death, Hospitalization)
  Sender: FDA-Public Use
  Company Number: FR-ROCHE-1837611

PATIENT
  Age: 77 Year
  Sex: Male
  Weight: 56 kg

DRUGS (64)
  1. DROPERIDOL. [Concomitant]
     Active Substance: DROPERIDOL
     Indication: VOMITING
  2. ALPRAZOLAM. [Concomitant]
     Active Substance: ALPRAZOLAM
     Indication: ANXIETY
     Route: 065
     Dates: start: 20160912, end: 20160913
  3. BISOPROLOL [Concomitant]
     Active Substance: BISOPROLOL
     Indication: HYPERTENSION
     Route: 048
     Dates: start: 20160915, end: 20160930
  4. PREDNISONE. [Concomitant]
     Active Substance: PREDNISONE
     Route: 048
     Dates: start: 20160915, end: 20160916
  5. POTASSIUM CHLORIDE. [Concomitant]
     Active Substance: POTASSIUM CHLORIDE
     Indication: HYPOKALAEMIA
     Route: 048
     Dates: start: 20160927, end: 20160927
  6. PHENOXYMETHYLPENICILLIN [Concomitant]
     Active Substance: PENICILLIN V
     Route: 048
     Dates: start: 20161022, end: 20161104
  7. SEDORRHOIDE [Concomitant]
     Indication: HAEMORRHOIDS
     Dosage: 1 UNIT
     Route: 054
     Dates: start: 20161029, end: 20161029
  8. FERROUS FUMARATE [Concomitant]
     Active Substance: FERROUS FUMARATE
     Indication: IRON DEFICIENCY
     Route: 048
     Dates: start: 20161205, end: 20161215
  9. PARACETAMOL [Concomitant]
     Active Substance: ACETAMINOPHEN
     Indication: PAIN
     Route: 048
     Dates: start: 20161202, end: 20161216
  10. METHYLPREDNISOLONE. [Concomitant]
     Active Substance: METHYLPREDNISOLONE
     Indication: PAIN
     Route: 042
     Dates: start: 20161215, end: 20161215
  11. CYCLOPHOSPHAMIDE. [Concomitant]
     Active Substance: CYCLOPHOSPHAMIDE
     Indication: CHEMOTHERAPY
     Dosage: FIRST CURE
     Route: 065
     Dates: start: 20161007
  12. ESOMEPRAZOLE [Concomitant]
     Active Substance: ESOMEPRAZOLE
     Route: 048
     Dates: start: 20161202, end: 20161209
  13. VANCOMYCINE [Concomitant]
     Active Substance: VANCOMYCIN
     Indication: INFECTION
     Route: 042
     Dates: start: 20160924, end: 20160927
  14. SUCRALFATE. [Concomitant]
     Active Substance: SUCRALFATE
     Indication: ULCER
     Route: 048
     Dates: start: 20160924, end: 20160930
  15. TINZAPARINE SODIQUE [Concomitant]
     Indication: THROMBOSIS
     Route: 058
     Dates: start: 20161025, end: 20161103
  16. SULFATE DE GENTAMICINE [Concomitant]
     Indication: INFECTION
     Route: 042
     Dates: start: 20161211, end: 20161211
  17. SIMVASTATINE [Concomitant]
     Active Substance: SIMVASTATIN
     Indication: HYPERCHOLESTEROLAEMIA
     Route: 048
     Dates: start: 2015
  18. GAVISCON (ALGINIC ACID) [Concomitant]
     Indication: GASTROOESOPHAGEAL REFLUX DISEASE
     Dosage: 1 UNIT
     Route: 048
     Dates: start: 20160822, end: 20160922
  19. PRIVIGEN [Concomitant]
     Active Substance: HUMAN IMMUNOGLOBULIN G
     Route: 042
     Dates: start: 20161028, end: 20161028
  20. PREDNISONE. [Concomitant]
     Active Substance: PREDNISONE
     Indication: CHEMOTHERAPY
     Dosage: FIRST CURE
     Route: 065
     Dates: start: 20161007
  21. VENETOCLAX [Suspect]
     Active Substance: VENETOCLAX
     Indication: CHRONIC LYMPHOCYTIC LEUKAEMIA
     Dosage: MOST RECENT DOSE (100 MG): 29/JUN/2016
     Route: 048
     Dates: start: 20160411
  22. ZELITREX [Concomitant]
     Active Substance: VALACYCLOVIR HYDROCHLORIDE
     Indication: INFECTION
     Route: 048
     Dates: start: 20160318
  23. ESOMEPRAZOLE [Concomitant]
     Active Substance: ESOMEPRAZOLE
     Route: 048
     Dates: start: 20161211, end: 20161214
  24. SUCRALFATE. [Concomitant]
     Active Substance: SUCRALFATE
     Indication: GASTRODUODENAL ULCER
     Dosage: 1 UNIT
     Route: 048
     Dates: start: 20161018, end: 20161104
  25. HYDROXYDAUNORUBICIN [Concomitant]
     Active Substance: DOXORUBICIN
     Indication: CHEMOTHERAPY
     Dosage: FIRST CURE
     Route: 065
     Dates: start: 20161007
  26. HYDROXYDAUNORUBICIN [Concomitant]
     Active Substance: DOXORUBICIN
     Dosage: SECOND CURE
     Route: 065
     Dates: start: 20161028
  27. ZYLORIC [Concomitant]
     Active Substance: ALLOPURINOL
     Indication: TUMOUR LYSIS SYNDROME
     Route: 048
     Dates: start: 20160310
  28. ALPRAZOLAM. [Concomitant]
     Active Substance: ALPRAZOLAM
     Indication: ANXIETY
     Route: 048
     Dates: start: 20160907, end: 20160907
  29. ZOPHREN [Concomitant]
     Active Substance: ONDANSETRON
     Indication: NAUSEA
     Route: 048
     Dates: start: 20160913, end: 20160913
  30. FUROSEMIDE. [Concomitant]
     Active Substance: FUROSEMIDE
     Route: 042
     Dates: start: 20161211, end: 20161211
  31. SUCRALFATE. [Concomitant]
     Active Substance: SUCRALFATE
     Route: 048
     Dates: start: 20161202, end: 20161215
  32. PHENOXYMETHYLPENICILLIN [Concomitant]
     Active Substance: PENICILLIN V
     Indication: INFECTION
     Route: 048
     Dates: start: 20161018, end: 20161020
  33. PHENOXYMETHYLPENICILLIN [Concomitant]
     Active Substance: PENICILLIN V
     Route: 048
     Dates: start: 20161203, end: 20161211
  34. OBINUTUZUMAB [Suspect]
     Active Substance: OBINUTUZUMAB
     Indication: CHRONIC LYMPHOCYTIC LEUKAEMIA
     Dosage: MOST RECENT DOSE: 28/JUN/2016 AT 1420
     Route: 042
     Dates: start: 20160316
  35. ISOPTINE [Concomitant]
     Active Substance: VERAPAMIL HYDROCHLORIDE
     Indication: HYPERTENSION
     Route: 048
     Dates: start: 20160909, end: 20161201
  36. ZELITREX [Concomitant]
     Active Substance: VALACYCLOVIR HYDROCHLORIDE
     Route: 048
     Dates: start: 20161018, end: 20161111
  37. ESOMEPRAZOLE [Concomitant]
     Active Substance: ESOMEPRAZOLE
     Indication: GASTROOESOPHAGEAL REFLUX DISEASE
     Route: 048
     Dates: start: 20160822, end: 20160922
  38. ESOMEPRAZOLE [Concomitant]
     Active Substance: ESOMEPRAZOLE
     Route: 042
     Dates: start: 20161022, end: 20161103
  39. CEFTRIAXONE. [Concomitant]
     Active Substance: CEFTRIAXONE
     Indication: INFECTION
     Route: 042
     Dates: start: 20160825, end: 20160902
  40. PREGABALINE [Concomitant]
     Active Substance: PREGABALIN
     Indication: ANXIETY
     Route: 048
     Dates: start: 20160907, end: 20160908
  41. OXYCODONE [Concomitant]
     Active Substance: OXYCODONE
     Indication: PAIN
     Route: 048
     Dates: start: 20160913, end: 20160913
  42. PREDNISONE. [Concomitant]
     Active Substance: PREDNISONE
     Route: 048
     Dates: start: 20160914, end: 20160914
  43. NORMACOL [Concomitant]
     Active Substance: KARAYA GUM
     Indication: CONSTIPATION
     Route: 054
     Dates: start: 20160927, end: 20160927
  44. PHENOXYMETHYLPENICILLIN [Concomitant]
     Active Substance: PENICILLIN V
     Route: 048
     Dates: start: 20161202, end: 20161203
  45. VERAPAMIL [Concomitant]
     Active Substance: VERAPAMIL HYDROCHLORIDE
     Indication: HYPERTENSION
     Route: 048
     Dates: start: 20161203, end: 20161215
  46. HEPARINE CALCIQUE [Concomitant]
     Active Substance: HEPARIN CALCIUM
     Dosage: 1 UNIT
     Route: 058
     Dates: start: 20161212, end: 20161212
  47. CYCLOPHOSPHAMIDE. [Concomitant]
     Active Substance: CYCLOPHOSPHAMIDE
     Dosage: SECOND CURE
     Route: 065
     Dates: start: 20161028
  48. VINCRISTINE [Concomitant]
     Active Substance: VINCRISTINE
     Dosage: SECOND CURE
     Route: 065
     Dates: start: 20161028
  49. VINCRISTINE [Concomitant]
     Active Substance: VINCRISTINE
     Dosage: THIRD CURE
     Route: 065
     Dates: start: 20161118
  50. ORACILLINE [Concomitant]
     Active Substance: PENICILLIN V
     Indication: INFECTION
     Route: 048
     Dates: start: 20160913, end: 20160930
  51. OXAZEPAM. [Concomitant]
     Active Substance: OXAZEPAM
     Indication: ANXIETY
     Route: 048
     Dates: start: 20160913, end: 20161005
  52. CYCLOPHOSPHAMIDE. [Concomitant]
     Active Substance: CYCLOPHOSPHAMIDE
     Dosage: THIRD CURE
     Route: 065
     Dates: start: 20161118
  53. VINCRISTINE [Concomitant]
     Active Substance: VINCRISTINE
     Indication: CHEMOTHERAPY
     Dosage: FIRST CURE
     Route: 065
     Dates: start: 20161007
  54. PREDNISONE. [Concomitant]
     Active Substance: PREDNISONE
     Dosage: THIRD CURE
     Route: 065
     Dates: start: 20161118
  55. ISOPTINE [Concomitant]
     Active Substance: VERAPAMIL HYDROCHLORIDE
     Indication: OBSTRUCTION GASTRIC
     Route: 048
     Dates: start: 2000, end: 20160901
  56. ZOPHREN [Concomitant]
     Active Substance: ONDANSETRON
     Indication: VOMITING
  57. DROPERIDOL. [Concomitant]
     Active Substance: DROPERIDOL
     Indication: NAUSEA
     Route: 042
     Dates: start: 20160908, end: 20160912
  58. FUROSEMIDE. [Concomitant]
     Active Substance: FUROSEMIDE
     Indication: HYPERTENSION
     Route: 048
     Dates: start: 20160913, end: 20160927
  59. POTASSIUM CHLORIDE. [Concomitant]
     Active Substance: POTASSIUM CHLORIDE
     Route: 048
     Dates: start: 20161024, end: 20161104
  60. PRIVIGEN [Concomitant]
     Active Substance: HUMAN IMMUNOGLOBULIN G
     Indication: INFECTION
     Route: 042
     Dates: start: 20161007, end: 20161007
  61. VALACICLOVIR [Concomitant]
     Active Substance: VALACYCLOVIR HYDROCHLORIDE
     Indication: INFECTION
     Route: 048
     Dates: start: 20161018, end: 20161104
  62. VALACICLOVIR [Concomitant]
     Active Substance: VALACYCLOVIR HYDROCHLORIDE
     Route: 048
     Dates: start: 20161203, end: 20161204
  63. HYDROXYDAUNORUBICIN [Concomitant]
     Active Substance: DOXORUBICIN
     Dosage: THIRD CURE
     Route: 065
     Dates: start: 20161118
  64. PREDNISONE. [Concomitant]
     Active Substance: PREDNISONE
     Dosage: SECOND CURE
     Route: 065
     Dates: start: 20161028

REACTIONS (7)
  - T-cell lymphoma [Not Recovered/Not Resolved]
  - Septic shock [Recovered/Resolved]
  - Splenomegaly [Recovered/Resolved]
  - Sepsis [Fatal]
  - Pancytopenia [Not Recovered/Not Resolved]
  - Pyrexia [Recovered/Resolved]
  - Wound evisceration [Recovered/Resolved]

NARRATIVE: CASE EVENT DATE: 20160723
